FAERS Safety Report 19689443 (Version 1)
Quarter: 2021Q3

REPORT INFORMATION
  Report Type: Spontaneous
  Country: GB (occurrence: GB)
  Receive Date: 20210812
  Receipt Date: 20210812
  Transmission Date: 20211014
  Serious: Yes (Hospitalization)
  Sender: FDA-Public Use
  Company Number: GB-TEVA-2021-GB-1939848

PATIENT
  Age: 50 Year
  Sex: Female

DRUGS (17)
  1. MORPHINE [Suspect]
     Active Substance: MORPHINE
     Indication: PAIN
     Dosage: 20 MILLIGRAM DAILY;
     Route: 048
  2. CARBOCISTEINE [Concomitant]
     Active Substance: CARBOCYSTEINE
     Indication: ILL-DEFINED DISORDER
  3. RAMIPRIL. [Concomitant]
     Active Substance: RAMIPRIL
     Indication: ILL-DEFINED DISORDER
  4. THEOPHYLLINE [Concomitant]
     Active Substance: THEOPHYLLINE ANHYDROUS
     Indication: ILL-DEFINED DISORDER
  5. ASPIRIN. [Concomitant]
     Active Substance: ASPIRIN
     Indication: ILL-DEFINED DISORDER
     Route: 065
  6. ATORVASTATIN [Concomitant]
     Active Substance: ATORVASTATIN
     Indication: ILL-DEFINED DISORDER
  7. LANSOPRAZOLE. [Concomitant]
     Active Substance: LANSOPRAZOLE
     Indication: ILL-DEFINED DISORDER
  8. TOPIRAMATE. [Concomitant]
     Active Substance: TOPIRAMATE
     Indication: ILL-DEFINED DISORDER
  9. MEBEVERINE [Concomitant]
     Active Substance: MEBEVERINE
     Indication: ILL-DEFINED DISORDER
  10. HYOSCINE [Suspect]
     Active Substance: SCOPOLAMINE
     Indication: ABDOMINAL PAIN
     Dosage: 80 MILLIGRAM DAILY;
     Route: 048
  11. DULOXETINE. [Concomitant]
     Active Substance: DULOXETINE
     Indication: ILL-DEFINED DISORDER
  12. DILTIAZEM HYDROCHLORIDE. [Concomitant]
     Active Substance: DILTIAZEM HYDROCHLORIDE
     Indication: ILL-DEFINED DISORDER
  13. ESTRADIOL. [Concomitant]
     Active Substance: ESTRADIOL
     Indication: ILL-DEFINED DISORDER
  14. MONTELUKAST SODIUM. [Concomitant]
     Active Substance: MONTELUKAST SODIUM
     Indication: ILL-DEFINED DISORDER
  15. NALOXEGOL [Concomitant]
     Active Substance: NALOXEGOL
     Indication: ILL-DEFINED DISORDER
  16. BISACODYL. [Concomitant]
     Active Substance: BISACODYL
     Indication: ILL-DEFINED DISORDER
  17. LINACLOTIDE [Concomitant]
     Active Substance: LINACLOTIDE
     Indication: ILL-DEFINED DISORDER

REACTIONS (1)
  - Overflow diarrhoea [Recovered/Resolved]
